FAERS Safety Report 10957861 (Version 3)
Quarter: 2016Q3

REPORT INFORMATION
  Report Type: Report from Study
  Country: TH (occurrence: TH)
  Receive Date: 20150326
  Receipt Date: 20160804
  Transmission Date: 20161109
  Serious: Yes (Death)
  Sender: FDA-Public Use
  Company Number: TH-ASTELLAS-2014US011857

PATIENT
  Age: 69 Year
  Sex: Male

DRUGS (1)
  1. ERLOTINIB [Suspect]
     Active Substance: ERLOTINIB
     Indication: PANCREATIC CARCINOMA
     Route: 048
     Dates: start: 20140526, end: 20140824

REACTIONS (1)
  - Death [Fatal]
